FAERS Safety Report 7130729-6 (Version None)
Quarter: 2010Q4

REPORT INFORMATION
  Report Type: 
  Country: None (occurrence: None)
  Receive Date: 20101201
  Receipt Date: 20101122
  Transmission Date: 20110411
  Serious: Yes (Other)
  Sender: FDA-Public Use
  Company Number: JP-ROCHE-724891

PATIENT
  Sex: Male

DRUGS (3)
  1. AVASTIN [Suspect]
     Indication: COLON CANCER
     Route: 041
     Dates: start: 20100628
  2. XELODA [Suspect]
     Indication: COLON CANCER
     Dosage: DRUG NAME: XELODA 300(CAPECITABINE), 2 WEEKS ADMINISTRATION FOLLOWED BY 1 WEEK REST.
     Route: 048
     Dates: start: 20100628
  3. ELPLAT [Concomitant]
     Indication: COLON CANCER
     Dosage: DOSAGE IS UNCERTAIN.ACTION TAKEN: DISCONTINUED.
     Route: 041

REACTIONS (1)
  - VISUAL FIELD DEFECT [None]
